FAERS Safety Report 7994520-0 (Version None)
Quarter: 2011Q4

REPORT INFORMATION
  Report Type: 
  Country: None (occurrence: None)
  Receive Date: 20111220
  Receipt Date: 20111207
  Transmission Date: 20120403
  Serious: Yes (Other)
  Sender: FDA-Public Use
  Company Number: JP-SANOFI-AVENTIS-2011SA082412

PATIENT
  Age: 55 Year
  Sex: Male
  Weight: 78 kg

DRUGS (9)
  1. OXALIPLATIN [Suspect]
     Dosage: 140 MG/BODY
     Route: 041
     Dates: start: 20110415
  2. OXALIPLATIN [Suspect]
     Indication: COLON CANCER
     Dosage: 150 MG/BODY
     Route: 041
     Dates: start: 20110128, end: 20110318
  3. FLUOROURACIL [Suspect]
     Dosage: D1-2
     Route: 041
     Dates: start: 20110128, end: 20110318
  4. FLUOROURACIL [Suspect]
     Route: 041
     Dates: start: 20110617, end: 20110617
  5. FLUOROURACIL [Suspect]
     Indication: COLON CANCER
     Route: 040
     Dates: end: 20110415
  6. FLUOROURACIL [Suspect]
     Dosage: 750 MG/BODY
     Route: 040
     Dates: start: 20110128
  7. FLUOROURACIL [Suspect]
     Route: 041
     Dates: start: 20110415
  8. OXALIPLATIN [Suspect]
     Route: 041
     Dates: start: 20110617, end: 20110617
  9. LEVOLEUCOVORIN CALCIUM [Concomitant]
     Indication: COLON CANCER
     Route: 041
     Dates: start: 20110128, end: 20110617

REACTIONS (3)
  - ARTHRITIS [None]
  - JOINT SWELLING [None]
  - NEUTROPHIL COUNT DECREASED [None]
